FAERS Safety Report 20596642 (Version 1)
Quarter: 2022Q1

REPORT INFORMATION
  Report Type: Spontaneous
  Country: US (occurrence: US)
  Receive Date: 20220315
  Receipt Date: 20220315
  Transmission Date: 20220424
  Serious: No
  Sender: FDA-Public Use
  Company Number: US-drreddys-SPO/USA/22/0147638

PATIENT
  Age: 59 Year
  Sex: Male

DRUGS (1)
  1. ZENATANE [Suspect]
     Active Substance: ISOTRETINOIN
     Indication: Product used for unknown indication
     Dosage: RMA ISSUE DATE: 16 JULY 2021 12:00:00 AM, 17 AUGUST 2021 12:00:00 AM, 22 SEPTEMBER 2021 12:00:00 AM,

REACTIONS (1)
  - Dry skin [Unknown]
